FAERS Safety Report 9755933 (Version 1)
Quarter: 2013Q4

REPORT INFORMATION
  Report Type: Other
  Country: ES (occurrence: ES)
  Receive Date: 20131213
  Receipt Date: 20131213
  Transmission Date: 20140711
  Serious: Yes (Other)
  Sender: FDA-Public Use
  Company Number: ES-BRISTOL-MYERS SQUIBB COMPANY-19915149

PATIENT
  Sex: Male

DRUGS (2)
  1. EFAVIRENZ [Suspect]
     Indication: HIV INFECTION
  2. RIFAMPICIN [Interacting]
     Indication: TUBERCULOSIS

REACTIONS (3)
  - Drug interaction [Unknown]
  - Drug level decreased [Unknown]
  - Neurological symptom [Unknown]
